FAERS Safety Report 5243578-0 (Version None)
Quarter: 2007Q1

REPORT INFORMATION
  Report Type: 
  Country: None (occurrence: None)
  Receive Date: 20070220
  Receipt Date: 20070220
  Transmission Date: 20070707
  Serious: Yes (Other)
  Sender: FDA-Public Use
  Company Number: None

PATIENT
  Sex: Female

DRUGS (2)
  1. BUPROPION HCL [Suspect]
     Indication: DYSTHYMIC DISORDER
     Dosage: 2  150MG IN A  1 IN PM
     Dates: start: 20060301, end: 20060401
  2. BUPROPION HCL [Suspect]
     Indication: MAJOR DEPRESSION
     Dosage: 2  150MG IN A  1 IN PM
     Dates: start: 20060301, end: 20060401

REACTIONS (2)
  - PHARMACEUTICAL PRODUCT COMPLAINT [None]
  - THERAPEUTIC RESPONSE UNEXPECTED WITH DRUG SUBSTITUTION [None]
